FAERS Safety Report 21603363 (Version 1)
Quarter: 2022Q4

REPORT INFORMATION
  Report Type: Spontaneous
  Country: US (occurrence: None)
  Receive Date: 20221115
  Receipt Date: 20221115
  Transmission Date: 20230113
  Serious: No
  Sender: FDA-Public Use
  Company Number: None

PATIENT
  Age: 73 Year
  Sex: Female
  Weight: 80.74 kg

DRUGS (11)
  1. KISQALI [Suspect]
     Active Substance: RIBOCICLIB
     Indication: Breast cancer female
     Dosage: OTHER FREQUENCY : 21DON7DOFF;?
     Route: 048
  2. ASPIRIN [Concomitant]
  3. FULVESTRANT [Concomitant]
  4. IMODIUM AD [Concomitant]
  5. VITAMIN D3 [Concomitant]
  6. LETROZOLE [Concomitant]
  7. LORAZEPA [Concomitant]
  8. MIRTAZAPINE [Concomitant]
  9. PRISTIQ EXTENDED-RELEASE [Concomitant]
     Active Substance: DESVENLAFAXINE SUCCINATE
  10. SILVER SULFADIAZINE [Concomitant]
  11. ZOLPIDEM [Concomitant]
     Active Substance: ZOLPIDEM TARTRATE

REACTIONS (1)
  - Drug ineffective [None]
